FAERS Safety Report 4524671-4 (Version None)
Quarter: 2004Q4

REPORT INFORMATION
  Report Type: 
  Country: None (occurrence: None)
  Receive Date: 20041211
  Receipt Date: 20030605
  Transmission Date: 20050328
  Serious: Yes (Hospitalization, Disabling, Other)
  Sender: FDA-Public Use
  Company Number: US-MERCK-0306USA00759

PATIENT
  Age: 54 Year
  Sex: Male
  Weight: 120 kg

DRUGS (21)
  1. VIOXX [Suspect]
     Indication: PAIN IN EXTREMITY
     Route: 048
     Dates: start: 20000104
  2. BUSPAR [Concomitant]
     Route: 048
     Dates: start: 19990402, end: 20000510
  3. LORTAB [Concomitant]
     Route: 048
     Dates: start: 19990410, end: 20001102
  4. LORTAB [Concomitant]
     Route: 048
  5. ZIAC [Concomitant]
     Indication: HYPERTENSION
     Route: 048
     Dates: start: 20000410, end: 20010225
  6. VICODIN [Concomitant]
     Indication: PAIN IN EXTREMITY
     Route: 048
     Dates: start: 20010225
  7. LIPITOR [Concomitant]
     Route: 048
     Dates: start: 20010707
  8. VALIUM [Concomitant]
     Route: 048
     Dates: start: 20010226, end: 20010927
  9. TALWIN [Concomitant]
     Route: 048
     Dates: start: 20010904, end: 20010927
  10. ULTRAM [Concomitant]
     Route: 048
     Dates: start: 20010904, end: 20010912
  11. SKELAXIN [Concomitant]
     Route: 048
     Dates: start: 20010927, end: 20011010
  12. TENYL [Concomitant]
     Route: 065
     Dates: start: 20010906, end: 20011011
  13. CLARITIN [Concomitant]
     Route: 065
  14. SERZONE [Concomitant]
     Route: 065
  15. VIOXX [Suspect]
     Indication: BACK PAIN
     Route: 048
     Dates: start: 20000401, end: 20010201
  16. VIOXX [Suspect]
     Route: 048
     Dates: start: 20010904
  17. VIOXX [Suspect]
     Route: 048
     Dates: start: 20010226, end: 20010901
  18. VIOXX [Suspect]
     Route: 048
     Dates: start: 20000104
  19. VIOXX [Suspect]
     Route: 048
     Dates: start: 20000401, end: 20010201
  20. VIOXX [Suspect]
     Route: 048
     Dates: start: 20010904
  21. VIOXX [Suspect]
     Route: 048
     Dates: start: 20010226, end: 20010901

REACTIONS (24)
  - ACQUIRED DIAPHRAGMATIC EVENTRATION [None]
  - ADVERSE EVENT [None]
  - ANGINA PECTORIS [None]
  - ATRIAL FIBRILLATION [None]
  - BACK PAIN [None]
  - BLOOD PRESSURE INCREASED [None]
  - CARDIAC ARREST [None]
  - CHEST DISCOMFORT [None]
  - CHEST PAIN [None]
  - CONVULSION [None]
  - CORONARY ARTERY DISEASE [None]
  - CORONARY ARTERY OCCLUSION [None]
  - DIAPHRAGMATIC DISORDER [None]
  - DISEASE RECURRENCE [None]
  - FEELING ABNORMAL [None]
  - INTERVERTEBRAL DISC DEGENERATION [None]
  - INTERVERTEBRAL DISC DISORDER [None]
  - INTERVERTEBRAL DISC PROTRUSION [None]
  - LOSS OF CONSCIOUSNESS [None]
  - MUSCULOSKELETAL DISCOMFORT [None]
  - MYOCARDIAL INFARCTION [None]
  - RADICULAR PAIN [None]
  - ROAD TRAFFIC ACCIDENT [None]
  - SUDDEN DEATH [None]
